FAERS Safety Report 21497618 (Version 1)
Quarter: 2022Q4

REPORT INFORMATION
  Report Type: Spontaneous
  Country: US (occurrence: None)
  Receive Date: 20221024
  Receipt Date: 20221024
  Transmission Date: 20230113
  Serious: Yes (Life-Threatening, Hospitalization, Other)
  Sender: FDA-Public Use
  Company Number: US-MLMSERVICE-20221010-3846012-1

PATIENT
  Age: 42 Year
  Sex: Male

DRUGS (1)
  1. HEPARIN [Suspect]
     Active Substance: HEPARIN SODIUM
     Indication: Peripheral arterial occlusive disease
     Route: 065

REACTIONS (5)
  - Obstructive shock [Recovering/Resolving]
  - Haemothorax [Recovering/Resolving]
  - Haemoglobin decreased [Recovering/Resolving]
  - Hypovolaemic shock [Recovering/Resolving]
  - Arterial haemorrhage [Recovered/Resolved]
